FAERS Safety Report 5289821-3 (Version None)
Quarter: 2007Q2

REPORT INFORMATION
  Report Type: 
  Country: None (occurrence: None)
  Receive Date: 20070406
  Receipt Date: 20070327
  Transmission Date: 20071010
  Serious: Yes (Hospitalization)
  Sender: FDA-Public Use
  Company Number: FR-SANOFI-SYNTHELABO-A02200700898

PATIENT
  Age: 86 Year
  Sex: Male
  Weight: 64 kg

DRUGS (12)
  1. SERETIDE DISKUS [Concomitant]
     Route: 045
  2. DOLIPRANE [Concomitant]
     Indication: DRUG USE FOR UNKNOWN INDICATION
     Route: 048
  3. INIPOMP [Concomitant]
     Indication: GASTROOESOPHAGEAL REFLUX DISEASE
     Route: 048
  4. CHRONADALATE [Concomitant]
     Indication: DRUG USE FOR UNKNOWN INDICATION
     Route: 048
  5. LASIX [Concomitant]
     Indication: DRUG USE FOR UNKNOWN INDICATION
     Route: 048
  6. PREVISCAN [Concomitant]
     Indication: PROPHYLAXIS
     Dosage: UNK
     Route: 048
  7. CORDARONE [Concomitant]
     Indication: ANGINA PECTORIS
     Route: 048
  8. TRINIPATCH [Concomitant]
     Indication: ANGINA PECTORIS
     Route: 062
  9. ELISOR [Concomitant]
     Indication: HYPERCHOLESTEROLAEMIA
     Route: 048
  10. POLYSILANE UPSA [Concomitant]
     Indication: DRUG USE FOR UNKNOWN INDICATION
     Route: 048
  11. STILNOX [Suspect]
     Indication: INSOMNIA
     Dosage: 10 MG
     Route: 048
     Dates: end: 20060311
  12. STILNOX [Suspect]
     Route: 048
     Dates: start: 20070312, end: 20070312

REACTIONS (6)
  - AMNESIA [None]
  - CONFUSIONAL STATE [None]
  - DELIRIUM [None]
  - FALL [None]
  - OVERDOSE [None]
  - SPINAL COMPRESSION FRACTURE [None]
